FAERS Safety Report 18879984 (Version 1)
Quarter: 2021Q1

REPORT INFORMATION
  Report Type: Spontaneous
  Country: LT (occurrence: LT)
  Receive Date: 20210211
  Receipt Date: 20210211
  Transmission Date: 20210420
  Serious: Yes (Hospitalization)
  Sender: FDA-Public Use
  Company Number: LT-ROCHE-2767748

PATIENT
  Age: 40 Year
  Sex: Male
  Weight: 80 kg

DRUGS (12)
  1. MYCOPHENOLIC ACID. [Concomitant]
     Active Substance: MYCOPHENOLIC ACID
  2. GANCICLOVIR. [Suspect]
     Active Substance: GANCICLOVIR
     Indication: CYTOMEGALOVIRUS INFECTION
     Dosage: 800 MG (400 MG X2))
     Route: 065
     Dates: start: 20201016, end: 20201103
  3. VALCYTE [Suspect]
     Active Substance: VALGANCICLOVIR HYDROCHLORIDE
     Indication: PRODUCT USED FOR UNKNOWN INDICATION
     Route: 048
  4. PERINDOPRIL ARGININE [Concomitant]
     Active Substance: PERINDOPRIL ARGININE
  5. ALLOPURINOL. [Concomitant]
     Active Substance: ALLOPURINOL
  6. TACROLIMUS. [Concomitant]
     Active Substance: TACROLIMUS
  7. MAGNESIUM [Concomitant]
     Active Substance: MAGNESIUM
  8. FLUVASTATIN [Concomitant]
     Active Substance: FLUVASTATIN SODIUM
  9. PREDNISOLONE. [Concomitant]
     Active Substance: PREDNISOLONE
  10. DILTIAZEM. [Concomitant]
     Active Substance: DILTIAZEM
  11. PANTOPRAZOLE [Concomitant]
     Active Substance: PANTOPRAZOLE
  12. ASPIRIN. [Concomitant]
     Active Substance: ASPIRIN

REACTIONS (2)
  - Drug resistance [Unknown]
  - Drug ineffective [Unknown]

NARRATIVE: CASE EVENT DATE: 20201016
